FAERS Safety Report 5071834-8 (Version None)
Quarter: 2006Q3

REPORT INFORMATION
  Report Type: 
  Country: None (occurrence: None)
  Receive Date: 20060801
  Receipt Date: 20060727
  Transmission Date: 20061208
  Serious: Yes (Death, Life-Threatening)
  Sender: FDA-Public Use
  Company Number: 200610986BVD

PATIENT
  Age: 91 Year
  Sex: Female
  Weight: 55 kg

DRUGS (4)
  1. CIPROBAY [Suspect]
     Indication: URINARY TRACT INFECTION
     Dosage: 500 MG TOTAL DAILY ORAL
     Route: 048
     Dates: start: 20060404, end: 20060407
  2. IBUPROFEN [Concomitant]
  3. ESCITALOPRAM OXALATE [Concomitant]
  4. MADOPAR [Concomitant]

REACTIONS (2)
  - PANCREATITIS [None]
  - SEPTIC SHOCK [None]
